FAERS Safety Report 5130122-1 (Version None)
Quarter: 2006Q4

REPORT INFORMATION
  Report Type: 
  Country: None (occurrence: None)
  Receive Date: 20061013
  Receipt Date: 20060929
  Transmission Date: 20070319
  Serious: Yes (Death, Other)
  Sender: FDA-Public Use
  Company Number: JP200610000581

PATIENT
  Age: 69 Year
  Sex: Male

DRUGS (4)
  1. GEMZAR [Suspect]
     Indication: PROSTATE CANCER
     Dosage: 800 MG/M2 INTRAVENOUS
     Route: 042
     Dates: start: 20021201, end: 20030301
  2. DOCETAXEL [Concomitant]
  3. CARBOPLATIN [Concomitant]
  4. THERAPEUTIC RADIOPHARMACEUTICALS [Concomitant]

REACTIONS (5)
  - HEPATITIS ACUTE [None]
  - HERPES ZOSTER [None]
  - MUSCULAR WEAKNESS [None]
  - NEUTROPENIA [None]
  - THROMBOCYTOPENIA [None]
